FAERS Safety Report 23250911 (Version 1)
Quarter: 2023Q4

REPORT INFORMATION
  Report Type: Spontaneous
  Country: US (occurrence: None)
  Receive Date: 20231130
  Receipt Date: 20231130
  Transmission Date: 20240110
  Serious: Yes (Hospitalization)
  Sender: FDA-Public Use
  Company Number: None

PATIENT
  Sex: Male

DRUGS (3)
  1. HUMIRA [Suspect]
     Active Substance: ADALIMUMAB
     Dosage: FREQUENCY : WEEKLY;?
     Route: 058
     Dates: start: 202303
  2. RINVOQ [Concomitant]
     Active Substance: UPADACITINIB
  3. EPIDIOLEX ORAL SOLN [Concomitant]

REACTIONS (2)
  - Seizure [None]
  - Haemorrhage [None]
